FAERS Safety Report 17601603 (Version 4)
Quarter: 2020Q2

REPORT INFORMATION
  Report Type: Not Available
  Country: US (occurrence: US)
  Receive Date: 20200330
  Receipt Date: 20200618
  Transmission Date: 20200713
  Serious: No
  Sender: FDA-Public Use
  Company Number: US-NEUROCRINE BIOSCIENCES INC.-2020NBI00983

PATIENT
  Age: 75 Year
  Sex: Male

DRUGS (20)
  1. TRAMADOL. [Concomitant]
     Active Substance: TRAMADOL
     Indication: PAIN
  2. FUROSEMIDE. [Concomitant]
     Active Substance: FUROSEMIDE
  3. ALFUZOSIN [Concomitant]
     Active Substance: ALFUZOSIN
     Route: 048
  4. INGREZZA [Suspect]
     Active Substance: VALBENAZINE
     Indication: TARDIVE DYSKINESIA
     Route: 048
     Dates: start: 20170718, end: 20170725
  5. PANTOPRAZOLE [Concomitant]
     Active Substance: PANTOPRAZOLE
  6. VITAMIN B12 [Concomitant]
     Active Substance: CYANOCOBALAMIN
     Route: 060
  7. TRAZODONE [Concomitant]
     Active Substance: TRAZODONE HYDROCHLORIDE
     Dosage: AT NIGHT
  8. PRIMIDONE. [Concomitant]
     Active Substance: PRIMIDONE
     Dosage: AT NIGHT
  9. FINASTERIDE. [Concomitant]
     Active Substance: FINASTERIDE
  10. ASPIRIN. [Concomitant]
     Active Substance: ASPIRIN
     Dosage: (LOW DOSE)
  11. DIVALPROEX [Concomitant]
     Active Substance: DIVALPROEX SODIUM
     Dosage: 1 TABLETS IN MORNING AND 2 AT NIGHT
  12. INGREZZA [Suspect]
     Active Substance: VALBENAZINE
     Route: 048
     Dates: start: 20170726
  13. METOPROLOL. [Concomitant]
     Active Substance: METOPROLOL
     Dosage: ONE TABLETS AT NIGHT
  14. DULOXETINE. [Concomitant]
     Active Substance: DULOXETINE
  15. VITAMIN D [Concomitant]
     Active Substance: VITAMIN D NOS
  16. CALCITRIOL. [Concomitant]
     Active Substance: CALCITRIOL
  17. LEVOTHYROXINE. [Concomitant]
     Active Substance: LEVOTHYROXINE
  18. MELATONIN [Concomitant]
     Active Substance: MELATONIN
     Dosage: PER NIGHT
  19. FOLIC ACID. [Concomitant]
     Active Substance: FOLIC ACID
     Route: 048
  20. AMLODIPINE [Concomitant]
     Active Substance: AMLODIPINE BESYLATE

REACTIONS (2)
  - Pyrexia [Unknown]
  - Accident [Unknown]

NARRATIVE: CASE EVENT DATE: 2018
